FAERS Safety Report 13574085 (Version 2)
Quarter: 2017Q2

REPORT INFORMATION
  Report Type: Report from Study
  Country: AU (occurrence: AU)
  Receive Date: 20170523
  Receipt Date: 20170601
  Transmission Date: 20170830
  Serious: Yes (Other)
  Sender: FDA-Public Use
  Company Number: AU-ASTRAZENECA-2017SE54518

PATIENT

DRUGS (1)
  1. GEFITINIB [Suspect]
     Active Substance: GEFITINIB
     Route: 048

REACTIONS (2)
  - EGFR gene mutation [Unknown]
  - Malignant neoplasm progression [Unknown]
